FAERS Safety Report 5417802-5 (Version None)
Quarter: 2007Q3

REPORT INFORMATION
  Report Type: 
  Country: None (occurrence: None)
  Receive Date: 20070815
  Receipt Date: 20070802
  Transmission Date: 20080115
  Serious: Yes (Hospitalization)
  Sender: FDA-Public Use
  Company Number: 159642USA

PATIENT
  Age: 85 Year
  Sex: Male

DRUGS (6)
  1. AZILECT [Suspect]
     Dosage: 1 MG (1 MG, 1 IN 1 D), ORAL
     Route: 048
     Dates: start: 20070430
  2. JANUVIA [Concomitant]
  3. FUROSEMIDE [Concomitant]
  4. LISINOPRIL [Concomitant]
  5. CLOPIDOGREL [Concomitant]
  6. SINEMET [Concomitant]

REACTIONS (1)
  - HYPERTENSIVE CRISIS [None]
